FAERS Safety Report 8866578 (Version 1)
Quarter: 2012Q4

REPORT INFORMATION
  Report Type: 
  Country: US (occurrence: US)
  Receive Date: 20121025
  Receipt Date: 20121025
  Transmission Date: 20130627
  Serious: No
  Sender: FDA-Public Use
  Company Number: US-AMGEN-USASP2012012691

PATIENT
  Age: 56 Year

DRUGS (2)
  1. ENBREL [Suspect]
     Indication: RHEUMATOID ARTHRITIS
     Dosage: 50 mg, qwk
     Dates: start: 20110801
  2. TREXALL [Concomitant]
     Dosage: UNK

REACTIONS (4)
  - Rhinorrhoea [Recovered/Resolved]
  - Throat irritation [Recovered/Resolved]
  - Sneezing [Not Recovered/Not Resolved]
  - Nasal congestion [Not Recovered/Not Resolved]
